FAERS Safety Report 24980403 (Version 1)
Quarter: 2025Q1

REPORT INFORMATION
  Report Type: Spontaneous
  Country: US (occurrence: None)
  Receive Date: 20250214
  Receipt Date: 20250214
  Transmission Date: 20250408
  Serious: Yes (Other)
  Sender: FDA-CTU
  Company Number: None

PATIENT
  Age: 84 Year
  Sex: Female

DRUGS (1)
  1. VALCHLOR [Suspect]
     Active Substance: MECHLORETHAMINE
     Indication: Cutaneous T-cell lymphoma
     Dosage: OTHER QUANTITY : 0.016MG;?FREQUENCY : DAILY;?
     Route: 061
     Dates: start: 20241118, end: 20250211

REACTIONS (4)
  - Application site irritation [None]
  - Application site ulcer [None]
  - Application site pain [None]
  - Therapy interrupted [None]

NARRATIVE: CASE EVENT DATE: 20250211
